FAERS Safety Report 14370353 (Version 1)
Quarter: 2018Q1

REPORT INFORMATION
  Report Type: Report from Study
  Country: US (occurrence: US)
  Receive Date: 20180110
  Receipt Date: 20180110
  Transmission Date: 20180509
  Serious: Yes (Hospitalization)
  Sender: FDA-Public Use
  Company Number: US-UCBSA-2017046491

PATIENT
  Sex: Female

DRUGS (3)
  1. LEVETIRACETAM. [Suspect]
     Active Substance: LEVETIRACETAM
     Indication: SEIZURE
     Dosage: UNK
  2. LEVETIRACETAM. [Suspect]
     Active Substance: LEVETIRACETAM
     Dosage: 2000 MG
  3. LAMICTAL [Concomitant]
     Active Substance: LAMOTRIGINE
     Indication: PRODUCT USED FOR UNKNOWN INDICATION

REACTIONS (2)
  - Blood test abnormal [Unknown]
  - Seizure [Unknown]
